FAERS Safety Report 14700238 (Version 1)
Quarter: 2018Q1

REPORT INFORMATION
  Report Type: Spontaneous
  Country: BR (occurrence: BR)
  Receive Date: 20180330
  Receipt Date: 20180330
  Transmission Date: 20180509
  Serious: Yes (Other)
  Sender: FDA-Public Use
  Company Number: BR-SA-2018SA089318

PATIENT
  Sex: Male
  Weight: 86 kg

DRUGS (11)
  1. GANFORT [Concomitant]
     Active Substance: BIMATOPROST\TIMOLOL
     Indication: CATARACT
     Route: 065
     Dates: start: 2009
  2. ZOLPIDEM TARTRATE. [Concomitant]
     Active Substance: ZOLPIDEM TARTRATE
     Indication: DEPRESSION
     Route: 048
     Dates: start: 201801
  3. AZORGA [Concomitant]
     Active Substance: BRINZOLAMIDE\TIMOLOL MALEATE
     Indication: CATARACT
     Dosage: 1 LITTLE DROP ON RIGHT EYE
     Route: 065
     Dates: start: 201801
  4. GANFORT [Concomitant]
     Active Substance: BIMATOPROST\TIMOLOL
     Indication: OCULAR DISCOMFORT
     Route: 065
     Dates: start: 2009
  5. APIDRA [Suspect]
     Active Substance: INSULIN GLULISINE
     Indication: DIABETES MELLITUS MANAGEMENT
     Route: 058
     Dates: start: 2011
  6. EBASTINE [Concomitant]
     Active Substance: EBASTINE
     Indication: ANTICOAGULANT THERAPY
     Route: 048
     Dates: start: 201609
  7. LANTUS [Suspect]
     Active Substance: INSULIN GLARGINE
     Indication: DIABETES MELLITUS
     Route: 058
     Dates: start: 2011
  8. OMEPRAZOLE. [Concomitant]
     Active Substance: OMEPRAZOLE
     Indication: GASTROOESOPHAGEAL REFLUX DISEASE
     Route: 048
     Dates: start: 201607
  9. GANFORT [Concomitant]
     Active Substance: BIMATOPROST\TIMOLOL
     Indication: GLAUCOMA
     Route: 065
     Dates: start: 2009
  10. ESPRAN [Concomitant]
     Active Substance: ESCITALOPRAM OXALATE
     Dosage: IN THE MORNING
     Route: 048
     Dates: start: 201801
  11. AZORGA [Concomitant]
     Active Substance: BRINZOLAMIDE\TIMOLOL MALEATE
     Indication: GLAUCOMA
     Dosage: 1 LITTLE DROP ON RIGHT EYE
     Route: 065
     Dates: start: 201801

REACTIONS (7)
  - Dizziness [Not Recovered/Not Resolved]
  - Depression [Not Recovered/Not Resolved]
  - Visual impairment [Not Recovered/Not Resolved]
  - Blood glucose increased [Unknown]
  - Hyperglycaemia [Unknown]
  - Intentional product misuse [Unknown]
  - Stress [Not Recovered/Not Resolved]

NARRATIVE: CASE EVENT DATE: 20180322
